FAERS Safety Report 5179793-4 (Version None)
Quarter: 2006Q4

REPORT INFORMATION
  Report Type: 
  Country: None (occurrence: None)
  Receive Date: 20061219
  Receipt Date: 20061212
  Transmission Date: 20070319
  Serious: Yes (Other)
  Sender: FDA-Public Use
  Company Number: IE-MERCK-0612GBR00056

PATIENT
  Age: 79 Year
  Sex: Male

DRUGS (5)
  1. ZETIA [Suspect]
     Indication: HYPERLIPIDAEMIA
     Route: 048
     Dates: start: 20061020
  2.  [Concomitant]
     Route: 065
  3.  [Concomitant]
     Route: 065
  4.  [Concomitant]
     Route: 065
  5.  [Concomitant]
     Route: 065

REACTIONS (1)
  - RENAL IMPAIRMENT [None]
